FAERS Safety Report 18138696 (Version 1)
Quarter: 2020Q3

REPORT INFORMATION
  Report Type: Other
  Country: CA (occurrence: CA)
  Receive Date: 20200812
  Receipt Date: 20200812
  Transmission Date: 20201103
  Serious: Yes (Other)
  Sender: FDA-Public Use
  Company Number: CA-APOTEX-2018AP014849

PATIENT
  Age: 53 Year
  Sex: Male

DRUGS (4)
  1. GAMMAGARD [Suspect]
     Active Substance: HUMAN IMMUNOGLOBULIN G
     Indication: MYASTHENIA GRAVIS
     Dosage: 8 MILLIGRAM/KILOGRAM, Q.WK.
     Route: 042
  2. MYCOPHENOLATE MOFETIL. [Suspect]
     Active Substance: MYCOPHENOLATE MOFETIL
     Indication: MYASTHENIA GRAVIS
     Route: 065
  3. PYRIDOSTIGMINE BROMIDE. [Suspect]
     Active Substance: PYRIDOSTIGMINE BROMIDE
     Indication: MYASTHENIA GRAVIS
     Route: 065
  4. IMMUNOGLOBULIN HUMAN [Suspect]
     Active Substance: HUMAN IMMUNOGLOBULIN G
     Indication: MYASTHENIA GRAVIS
     Route: 042

REACTIONS (3)
  - Intentional product use issue [Unknown]
  - Therapy non-responder [Unknown]
  - Product use in unapproved indication [Unknown]
